FAERS Safety Report 7132509-4 (Version None)
Quarter: 2010Q4

REPORT INFORMATION
  Report Type: 
  Country: None (occurrence: None)
  Receive Date: 20101202
  Receipt Date: 20101122
  Transmission Date: 20110411
  Serious: Yes (Hospitalization)
  Sender: FDA-Public Use
  Company Number: CA-ROCHE-744257

PATIENT
  Sex: Male
  Weight: 70.3 kg

DRUGS (7)
  1. BEVACIZUMAB [Suspect]
     Indication: GLIOBLASTOMA
     Route: 042
     Dates: start: 20101007
  2. DECADRON [Concomitant]
  3. PANTOLOC [Concomitant]
  4. STEMETIL [Concomitant]
  5. SENOKOT [Concomitant]
  6. COLACE [Concomitant]
  7. LACTULOSE [Concomitant]

REACTIONS (2)
  - MOBILITY DECREASED [None]
  - SOMNOLENCE [None]
